FAERS Safety Report 8500459-4 (Version None)
Quarter: 2012Q3

REPORT INFORMATION
  Report Type: 
  Country: None (occurrence: None)
  Receive Date: 20120710
  Receipt Date: 20120702
  Transmission Date: 20120928
  Serious: Yes (Other)
  Sender: FDA-Public Use
  Company Number: JP-GLAXOSMITHKLINE-B0813034A

PATIENT
  Age: 58 Year
  Sex: Female

DRUGS (4)
  1. FLUVOXAMINE MALEATE [Suspect]
     Dosage: 75MG PER DAY
     Route: 048
  2. ALPRAZOLAM [Suspect]
     Dosage: 1.2MG PER DAY
     Route: 048
  3. PAROXETINE [Suspect]
     Indication: DEPRESSION
     Dosage: 30MG PER DAY
     Route: 048
  4. BIPERIDEN HYDROCHLORIDE TAB [Concomitant]
     Dosage: 6MG PER DAY
     Route: 048

REACTIONS (6)
  - LONG QT SYNDROME [None]
  - TORSADE DE POINTES [None]
  - SYNCOPE [None]
  - ELECTROCARDIOGRAM T WAVE INVERSION [None]
  - ELECTROCARDIOGRAM QT PROLONGED [None]
  - VENTRICULAR EXTRASYSTOLES [None]
